FAERS Safety Report 5333504-8 (Version None)
Quarter: 2007Q2

REPORT INFORMATION
  Report Type: 
  Country: None (occurrence: None)
  Receive Date: 20070522
  Receipt Date: 20070522
  Transmission Date: 20071010
  Serious: Yes (Death)
  Sender: FDA-Public Use
  Company Number: None

PATIENT
  Sex: Male
  Weight: 80.2867 kg

DRUGS (13)
  1. OXALIPLATIN [Suspect]
     Indication: OESOPHAGEAL ADENOCARCINOMA
     Dosage: 50 MG/M2 1/WK --M-F 28 DY IV
     Route: 042
     Dates: start: 20070403, end: 20070508
  2. CAPECITABINE-DAILY M-F 28 DAYS [Suspect]
     Indication: OESOPHAGEAL ADENOCARCINOMA
     Dosage: 825 MG/M2 1/WK --M-F 28 DAY ORAL
     Route: 048
     Dates: start: 20070403, end: 20070510
  3. CETUXIMAB-ONCE/WK-6 WKS [Suspect]
     Indication: OESOPHAGEAL ADENOCARCINOMA
     Dosage: 250 MG/M2 1/WK -M-F 28 DYS IV
     Route: 042
     Dates: start: 20070327, end: 20070508
  4. CETUXIMAB-ONCE/WK-6 WKS [Suspect]
  5. RAD THERAPY-M-F FOR 28 DAYS [Suspect]
     Indication: OESOPHAGEAL ADENOCARCINOMA
     Dosage: 50.4GY-28 1/WK -M-F 28 DYS RT
     Dates: start: 20070403, end: 20070510
  6. CORTISONE ACETATE [Concomitant]
  7. ORAL POTASSIUM SUPPLEMENTS [Concomitant]
  8. LASIX [Concomitant]
  9. PREVACID [Concomitant]
  10. METOPROLOL SUCCINATE [Concomitant]
  11. ZOFRAN [Concomitant]
  12. COMPAZINE [Concomitant]
  13. MEGACE [Concomitant]

REACTIONS (13)
  - CHILLS [None]
  - DECREASED APPETITE [None]
  - HAEMODYNAMIC INSTABILITY [None]
  - HYPERNATRAEMIA [None]
  - HYPOTENSION [None]
  - HYPOXIA [None]
  - NEUTROPENIA [None]
  - PULMONARY EMBOLISM [None]
  - PYREXIA [None]
  - RENAL FAILURE ACUTE [None]
  - RESPIRATORY FAILURE [None]
  - SEPTIC SHOCK [None]
  - SUPRAVENTRICULAR TACHYCARDIA [None]
